FAERS Safety Report 7457852-0 (Version None)
Quarter: 2011Q2

REPORT INFORMATION
  Report Type: 
  Country: None (occurrence: None)
  Receive Date: 20110504
  Receipt Date: 20110421
  Transmission Date: 20111010
  Serious: No
  Sender: FDA-Public Use
  Company Number: US-B.I. PHARMACEUTICALS,INC./RIDGEFIELD-2011-BP-02302BP

PATIENT
  Sex: Female

DRUGS (6)
  1. VITAMIN D [Concomitant]
  2. CLONIDINE HCL [Suspect]
     Indication: HYPERTENSION
     Dosage: 2 MG
     Route: 048
     Dates: start: 20100604, end: 20110112
  3. METFORMIN HYDROCHLORIDE [Concomitant]
     Indication: DIABETES MELLITUS
     Route: 048
  4. VALTURNA [Concomitant]
     Indication: BLOOD PRESSURE INCREASED
     Route: 048
  5. HYDRALAZINE HCL [Suspect]
     Indication: BLOOD PRESSURE INCREASED
     Dosage: 150 MG
     Route: 048
     Dates: start: 20100421, end: 20110101
  6. PRANDIN [Concomitant]
     Indication: DIABETES MELLITUS
     Route: 048

REACTIONS (4)
  - BLOOD PRESSURE DECREASED [None]
  - BLOOD PRESSURE INCREASED [None]
  - PALPITATIONS [None]
  - DRY EYE [None]
